FAERS Safety Report 4407852-X (Version None)
Quarter: 2004Q3

REPORT INFORMATION
  Report Type: 
  Country: None (occurrence: None)
  Receive Date: 20040726
  Receipt Date: 20040720
  Transmission Date: 20050211
  Serious: Yes (Hospitalization)
  Sender: FDA-Public Use
  Company Number: FR-GLAXOSMITHKLINE-B0340230A

PATIENT
  Age: 45 Year
  Sex: Male

DRUGS (6)
  1. EPIVIR [Suspect]
     Indication: HIV INFECTION
     Dosage: 300MG PER DAY
     Route: 048
     Dates: end: 20040304
  2. BACTRIM [Suspect]
     Dosage: 1UNIT PER DAY
     Route: 048
     Dates: end: 20040304
  3. VIRAMUNE [Suspect]
     Indication: HIV INFECTION
     Dosage: 200MG TWICE PER DAY
     Route: 048
     Dates: end: 20040304
  4. ZERIT [Suspect]
     Indication: HIV INFECTION
     Dosage: 40MG TWICE PER DAY
     Route: 048
     Dates: end: 20040304
  5. MALOCIDE [Concomitant]
     Route: 048
  6. CLINDAMYCIN HCL [Concomitant]
     Route: 048

REACTIONS (1)
  - PANCYTOPENIA [None]
